FAERS Safety Report 9987232 (Version 1)
Quarter: 2014Q1

REPORT INFORMATION
  Report Type: Report from Study
  Country: US (occurrence: US)
  Receive Date: 20140307
  Receipt Date: 20140307
  Transmission Date: 20141002
  Serious: No
  Sender: FDA-Public Use
  Company Number: US-ABBVIE-13P-163-1081696-00

PATIENT
  Age: 65 Year
  Sex: Male
  Weight: 125.3 kg

DRUGS (5)
  1. HUMIRA [Suspect]
     Indication: PSORIASIS
     Dates: start: 201303, end: 201303
  2. HUMIRA [Suspect]
     Dosage: 1 WEEK AFTER INITIAL DOSE
     Dates: start: 201303
  3. VERAMYST [Concomitant]
     Indication: ASTHMA
  4. ADVAIR [Concomitant]
     Indication: PRODUCT USED FOR UNKNOWN INDICATION
  5. ATORVASTATIN [Concomitant]
     Indication: BLOOD CHOLESTEROL INCREASED

REACTIONS (1)
  - Rash [Recovering/Resolving]
